FAERS Safety Report 25201305 (Version 3)
Quarter: 2025Q2

REPORT INFORMATION
  Report Type: Spontaneous
  Country: US (occurrence: US)
  Receive Date: 20250416
  Receipt Date: 20250417
  Transmission Date: 20250716
  Serious: Yes (Other)
  Sender: SANOFI AVENTIS
  Company Number: US-SA-2025SA108872

PATIENT
  Age: 28 Year
  Sex: Female

DRUGS (1)
  1. DUPIXENT [Suspect]
     Active Substance: DUPILUMAB
     Indication: Eosinophilic oesophagitis
     Dosage: 300 MG, QW
     Route: 058
     Dates: start: 202208

REACTIONS (5)
  - Eosinophilic oesophagitis [Unknown]
  - Choking [Unknown]
  - Chest pain [Unknown]
  - Pharyngeal swelling [Unknown]
  - Rebound effect [Unknown]

NARRATIVE: CASE EVENT DATE: 20250201
